FAERS Safety Report 6805443-4 (Version None)
Quarter: 2010Q2

REPORT INFORMATION
  Report Type: 
  Country: None (occurrence: None)
  Receive Date: 20100628
  Receipt Date: 20071129
  Transmission Date: 20101027
  Serious: No
  Sender: FDA-Public Use
  Company Number: US-PFIZER INC-2007094881

PATIENT
  Age: 67 Year
  Sex: Male

DRUGS (5)
  1. XALATAN [Suspect]
     Indication: INTRAOCULAR PRESSURE TEST ABNORMAL
     Dates: start: 20071108
  2. LISINOPRIL [Concomitant]
  3. NEXIUM [Concomitant]
  4. ZETIA [Concomitant]
  5. ACETYLSALICYLIC ACID [Concomitant]

REACTIONS (1)
  - EYE IRRITATION [None]
